FAERS Safety Report 8012770-4 (Version None)
Quarter: 2011Q4

REPORT INFORMATION
  Report Type: 
  Country: None (occurrence: None)
  Receive Date: 20111229
  Receipt Date: 20111220
  Transmission Date: 20120403
  Serious: Yes (Life-Threatening, Hospitalization, Disabling)
  Sender: FDA-Public Use
  Company Number: US-CELGENEUS-163-21880-11101767

PATIENT
  Sex: Female

DRUGS (4)
  1. REVLIMID [Suspect]
     Indication: MULTIPLE MYELOMA
     Dosage: 25 MILLIGRAM
     Route: 048
     Dates: start: 20110714, end: 20111010
  2. ZOMETA [Concomitant]
     Route: 065
     Dates: start: 20110628
  3. VELCADE [Concomitant]
     Route: 065
     Dates: start: 20110628
  4. DEXAMETHASONE [Concomitant]
     Route: 065
     Dates: start: 20110628

REACTIONS (2)
  - DRUG INEFFECTIVE [None]
  - MULTIPLE MYELOMA [None]
